FAERS Safety Report 23560522 (Version 3)
Quarter: 2024Q1

REPORT INFORMATION
  Report Type: Spontaneous
  Country: GB (occurrence: GB)
  Receive Date: 20240223
  Receipt Date: 20240321
  Transmission Date: 20240410
  Serious: Yes (Hospitalization, Other)
  Sender: FDA-Public Use
  Company Number: GB-009507513-2402GBR007753

PATIENT
  Sex: Male

DRUGS (2)
  1. KEYTRUDA [Suspect]
     Active Substance: PEMBROLIZUMAB
     Indication: Squamous cell carcinoma
     Dosage: 200MG/100ML, 3 WEEKLY / 6 WEEKLY
     Route: 042
     Dates: start: 20240104, end: 2024
  2. KEYTRUDA [Suspect]
     Active Substance: PEMBROLIZUMAB
     Dosage: 200 MG, 3 WEEKLY / 6 WEEKLY
     Route: 042
     Dates: start: 202312

REACTIONS (10)
  - Lower respiratory tract infection [Unknown]
  - Hypotension [Unknown]
  - Oxygen saturation abnormal [Unknown]
  - Platelet count increased [Unknown]
  - Neutrophil count increased [Unknown]
  - White blood cell count increased [Unknown]
  - Vascular access complication [Unknown]
  - Constipation [Unknown]
  - Joint swelling [Unknown]
  - Oedema peripheral [Unknown]

NARRATIVE: CASE EVENT DATE: 20240101
